FAERS Safety Report 17621071 (Version 1)
Quarter: 2020Q2

REPORT INFORMATION
  Report Type: Spontaneous
  Country: SK (occurrence: SK)
  Receive Date: 20200403
  Receipt Date: 20200403
  Transmission Date: 20200713
  Serious: Yes (Other)
  Sender: FDA-Public Use
  Company Number: SK-TEVA-2020-SK-1217604

PATIENT
  Age: 70 Year
  Sex: Male
  Weight: 80 kg

DRUGS (2)
  1. DICLOFENAC [Suspect]
     Active Substance: DICLOFENAC
     Indication: BACK PAIN
     Dosage: 1-0-1
     Route: 048
  2. DORSIFLEX (MEPHENOXALONE) [Suspect]
     Active Substance: MEPHENOXALONE
     Indication: BACK PAIN
     Dosage: 1-0-1:1 DOSAGEFROM
     Route: 048

REACTIONS (2)
  - Tongue oedema [Unknown]
  - Face oedema [Unknown]

NARRATIVE: CASE EVENT DATE: 20191222
